FAERS Safety Report 7083414-3 (Version None)
Quarter: 2010Q4

REPORT INFORMATION
  Report Type: 
  Country: None (occurrence: None)
  Receive Date: 20101104
  Receipt Date: 20101029
  Transmission Date: 20110411
  Serious: Yes (Hospitalization, Disabling)
  Sender: FDA-Public Use
  Company Number: A0889707A

PATIENT
  Age: 23 Year
  Sex: Female

DRUGS (3)
  1. LAMOTRIGINE [Suspect]
     Indication: EPILEPSY
     Dosage: 400MG AT NIGHT
     Route: 048
  2. KEPPRA [Concomitant]
  3. YAZ [Concomitant]

REACTIONS (5)
  - BALANCE DISORDER [None]
  - DIPLOPIA [None]
  - LETHARGY [None]
  - NAUSEA [None]
  - VOMITING [None]
